APPROVED DRUG PRODUCT: CARMUSTINE
Active Ingredient: CARMUSTINE
Strength: 100MG/VIAL
Dosage Form/Route: INJECTABLE;INJECTION
Application: A213207 | Product #001 | TE Code: AP
Applicant: DR REDDYS LABORATORIES LTD
Approved: Oct 22, 2020 | RLD: No | RS: No | Type: RX